FAERS Safety Report 7260860-6 (Version None)
Quarter: 2011Q1

REPORT INFORMATION
  Report Type: 
  Country: None (occurrence: None)
  Receive Date: 20110130
  Receipt Date: 20101123
  Transmission Date: 20110831
  Serious: No
  Sender: FDA-Public Use
  Company Number: US-ABBOTT-10P-163-0687326-00

PATIENT
  Age: 29 Year
  Sex: Female

DRUGS (3)
  1. HUMIRA [Suspect]
     Dosage: INITIAL DOSE
     Dates: start: 20101123
  2. LOW-OGESTERAL [Concomitant]
     Indication: PRODUCT USED FOR UNKNOWN INDICATION
     Dosage: 1 DAILY FOR 21 DAYS OFF 7 DAYS
  3. HUMIRA [Suspect]
     Indication: PSORIASIS

REACTIONS (7)
  - PNEUMONIA [None]
  - BRONCHITIS [None]
  - DRUG DOSE OMISSION [None]
  - MOVEMENT DISORDER [None]
  - OEDEMA PERIPHERAL [None]
  - INCORRECT ROUTE OF DRUG ADMINISTRATION [None]
  - WRONG TECHNIQUE IN DRUG USAGE PROCESS [None]
